FAERS Safety Report 5907117-0 (Version None)
Quarter: 2008Q4

REPORT INFORMATION
  Report Type: 
  Country: None (occurrence: None)
  Receive Date: 20081003
  Receipt Date: 20080922
  Transmission Date: 20090506
  Serious: Yes (Hospitalization)
  Sender: FDA-Public Use
  Company Number: TR-ELI_LILLY_AND_COMPANY-TR200809005788

PATIENT
  Sex: Male
  Weight: 1.15 kg

DRUGS (2)
  1. HUMULIN N [Suspect]
     Indication: GESTATIONAL DIABETES
     Dosage: 20 IU, DAILY (1/D)
     Route: 064
     Dates: start: 20080301, end: 20080701
  2. HUMULIN R [Suspect]
     Indication: GESTATIONAL DIABETES
     Dosage: 16 U, 3/D
     Route: 064
     Dates: start: 20080301, end: 20080701

REACTIONS (3)
  - DRUG EXPOSURE DURING PREGNANCY [None]
  - DYSPNOEA [None]
  - PREMATURE BABY [None]
